FAERS Safety Report 8588468-0 (Version None)
Quarter: 2012Q3

REPORT INFORMATION
  Report Type: 
  Country: None (occurrence: None)
  Receive Date: 20120731
  Receipt Date: 20120719
  Transmission Date: 20120928
  Serious: Yes (Hospitalization)
  Sender: FDA-Public Use
  Company Number: AUR-APL-2012-03228

PATIENT
  Age: 58 Year
  Sex: Male

DRUGS (5)
  1. ACETAMINOPHEN [Concomitant]
  2. VITAMIN D [Concomitant]
  3. RIBAVIRIN [Suspect]
     Indication: HEPATITIS C
     Dosage: DAILY (1200 MG), ORAL
     Route: 048
  4. PEGINTERFERON ALFA-2B [Suspect]
     Indication: HEPATITIS C
     Dosage: WEEKLY (150 MCG), SUBCUTANEOUS
     Route: 058
  5. SILDENAFIL CITRATE [Concomitant]

REACTIONS (14)
  - WAXY FLEXIBILITY [None]
  - ASPARTATE AMINOTRANSFERASE INCREASED [None]
  - WHITE BLOOD CELL COUNT DECREASED [None]
  - ALANINE AMINOTRANSFERASE INCREASED [None]
  - MUSCULOSKELETAL STIFFNESS [None]
  - PLATELET COUNT DECREASED [None]
  - RESTLESSNESS [None]
  - AGITATION [None]
  - EATING DISORDER [None]
  - STUPOR [None]
  - PANCYTOPENIA [None]
  - MUTISM [None]
  - IRRITABILITY [None]
  - DEPRESSION [None]
